FAERS Safety Report 9694376 (Version 4)
Quarter: 2013Q4

REPORT INFORMATION
  Report Type: Spontaneous
  Country: US (occurrence: US)
  Receive Date: 20131118
  Receipt Date: 20131227
  Transmission Date: 20140711
  Serious: No
  Sender: FDA-Public Use
  Company Number: US-GILEAD-2013-0088035

PATIENT
  Sex: Female

DRUGS (5)
  1. LETAIRIS [Suspect]
     Indication: PULMONARY HYPERTENSION
     Dosage: 10 MG, QD
     Dates: start: 20110916, end: 20131126
  2. LETAIRIS [Suspect]
     Indication: SCLERODERMA
  3. DIGOXIN [Concomitant]
  4. REVATIO [Concomitant]
  5. SPIRONOLACTONE [Concomitant]

REACTIONS (1)
  - Liver function test abnormal [Not Recovered/Not Resolved]
